FAERS Safety Report 4629891-6 (Version None)
Quarter: 2005Q2

REPORT INFORMATION
  Report Type: 
  Country: None (occurrence: None)
  Receive Date: 20050406
  Receipt Date: 20050321
  Transmission Date: 20051028
  Serious: Yes (Death, Hospitalization)
  Sender: FDA-Public Use
  Company Number: GBS050316856

PATIENT
  Age: 77 Year
  Sex: Female
  Weight: 57 kg

DRUGS (6)
  1. FORTEO [Suspect]
     Indication: OSTEOPOROSIS
     Dosage: 20 IG/1 DAY
     Dates: start: 20050104, end: 20050224
  2. ADIZEMXL (DILTIAZEM HYDROCHLORIDE) [Concomitant]
  3. OMEPRAZOLE [Concomitant]
  4. QUININE SULPHATE [Concomitant]
  5. FRUSEMIDE [Concomitant]
  6. WARFARIN [Concomitant]

REACTIONS (9)
  - CARDIAC FAILURE ACUTE [None]
  - CARDIOMEGALY [None]
  - CARDIOMYOPATHY [None]
  - CHEST DISCOMFORT [None]
  - CHOLECYSTITIS [None]
  - MUSCULOSKELETAL DISCOMFORT [None]
  - NAUSEA [None]
  - VENTRICULAR HYPERTROPHY [None]
  - VOMITING [None]
